FAERS Safety Report 10705477 (Version 3)
Quarter: 2015Q4

REPORT INFORMATION
  Report Type: Report from Study
  Country: US (occurrence: US)
  Receive Date: 20150112
  Receipt Date: 20151130
  Transmission Date: 20160304
  Serious: Yes (Death, Hospitalization, Other)
  Sender: FDA-Public Use
  Company Number: US-GILEAD-2015-0130392

PATIENT
  Age: 67 Year
  Sex: Female

DRUGS (1)
  1. AMBRISENTAN [Suspect]
     Active Substance: AMBRISENTAN
     Indication: PULMONARY ARTERIAL HYPERTENSION
     Dosage: 5 MG, UNK
     Route: 065
     Dates: start: 20080624, end: 20141225

REACTIONS (4)
  - Arteriovenous fistula site haemorrhage [Fatal]
  - Renal cancer [Unknown]
  - Cardiac arrest [Fatal]
  - Dialysis related complication [Unknown]

NARRATIVE: CASE EVENT DATE: 20141214
